FAERS Safety Report 16840932 (Version 1)
Quarter: 2019Q3

REPORT INFORMATION
  Report Type: Spontaneous
  Country: US (occurrence: US)
  Receive Date: 20190923
  Receipt Date: 20190923
  Transmission Date: 20191005
  Serious: No
  Sender: FDA-Public Use
  Company Number: US-JNJFOC-20190923866

PATIENT
  Sex: Female
  Weight: 138 kg

DRUGS (3)
  1. PEPCID [Suspect]
     Active Substance: FAMOTIDINE
     Indication: GASTROOESOPHAGEAL REFLUX DISEASE
     Route: 048
     Dates: start: 2019
  2. ASACOL HD [Concomitant]
     Active Substance: MESALAMINE
     Indication: CROHN^S DISEASE
     Route: 048
  3. STELARA [Suspect]
     Active Substance: USTEKINUMAB
     Indication: CROHN^S DISEASE
     Route: 058
     Dates: start: 2019

REACTIONS (5)
  - Hyperaesthesia [Unknown]
  - Pruritus [Unknown]
  - Urticaria [Unknown]
  - Erythema [Unknown]
  - Rash generalised [Unknown]

NARRATIVE: CASE EVENT DATE: 2019
